FAERS Safety Report 23225481 (Version 1)
Quarter: 2023Q4

REPORT INFORMATION
  Report Type: Spontaneous
  Country: US (occurrence: US)
  Receive Date: 20231124
  Receipt Date: 20231124
  Transmission Date: 20240110
  Serious: Yes (Life-Threatening, Hospitalization, Other)
  Sender: FDA-Public Use
  Company Number: US-009507513-2311USA007453

PATIENT
  Sex: Female

DRUGS (1)
  1. KEYTRUDA [Suspect]
     Active Substance: PEMBROLIZUMAB
     Indication: Genital neoplasm malignant female
     Dosage: UNK

REACTIONS (3)
  - Eye disorder [Recovering/Resolving]
  - Pharyngeal disorder [Recovering/Resolving]
  - Myasthenia gravis [Recovering/Resolving]
